FAERS Safety Report 7899954-0 (Version None)
Quarter: 2011Q4

REPORT INFORMATION
  Report Type: 
  Country: None (occurrence: None)
  Receive Date: 20111107
  Receipt Date: 20111014
  Transmission Date: 20120403
  Serious: No
  Sender: FDA-Public Use
  Company Number: US-AMGEN-USASP2011046285

PATIENT
  Age: 42 Year
  Sex: Female
  Weight: 73.016 kg

DRUGS (5)
  1. HYDROCODONE BITARTRATE [Concomitant]
     Dosage: 5/500, FOUR TIMES A DAY
  2. ARAVA [Concomitant]
     Dosage: 20 MG, QD
  3. DICLOFENAC SODIUM [Concomitant]
     Dosage: UNK
  4. LEVOTHYROXINE SODIUM [Concomitant]
     Dosage: UNK
  5. ENBREL [Suspect]
     Indication: RHEUMATOID ARTHRITIS
     Dosage: 50 MG, QWK
     Dates: start: 20110401

REACTIONS (7)
  - INJECTION SITE PAIN [None]
  - INJECTION SITE ERYTHEMA [None]
  - INJECTION SITE HAEMATOMA [None]
  - INJECTION SITE MASS [None]
  - OSTEOARTHRITIS [None]
  - INJECTION SITE PRURITUS [None]
  - INJECTION SITE HAEMORRHAGE [None]
